FAERS Safety Report 18220331 (Version 1)
Quarter: 2020Q3

REPORT INFORMATION
  Report Type: Report from Study
  Country: AU (occurrence: AU)
  Receive Date: 20200902
  Receipt Date: 20200902
  Transmission Date: 20201103
  Serious: Yes (Life-Threatening, Hospitalization, Other)
  Sender: FDA-Public Use
  Company Number: AU-BRISTOL-MYERS SQUIBB COMPANY-BMS-2020-069807

PATIENT
  Age: 66 Year
  Sex: Male

DRUGS (23)
  1. CANDESARTAN. [Concomitant]
     Active Substance: CANDESARTAN
     Indication: HYPERTENSION
     Dosage: 32 MILLIGRAM, QD
     Route: 065
     Dates: start: 2015
  2. HYDROCORTISONE. [Concomitant]
     Active Substance: HYDROCORTISONE
     Indication: INFUSION RELATED REACTION
     Dosage: 100 MILLIGRAM, PRN
     Route: 065
     Dates: start: 20191001, end: 20191001
  3. PETHIDINE [Concomitant]
     Active Substance: MEPERIDINE
     Indication: INFUSION RELATED REACTION
     Dosage: 25 MILLIGRAM, STAT
     Route: 065
     Dates: start: 20191001, end: 20191001
  4. PANTOPRAZOLE [Concomitant]
     Active Substance: PANTOPRAZOLE
     Dosage: 40 MILLIGRAM HOURLY
     Route: 042
     Dates: start: 20200823, end: 20200823
  5. ENOXAPARIN [Concomitant]
     Active Substance: ENOXAPARIN
     Indication: THROMBOSIS PROPHYLAXIS
     Dosage: 20 MILLIGRAM, DAILY
     Route: 065
     Dates: start: 20200823, end: 20200825
  6. AMOXICILLIN. [Concomitant]
     Active Substance: AMOXICILLIN
     Indication: PHARYNGITIS
     Dosage: TDS
     Route: 065
     Dates: start: 20200412, end: 20200418
  7. FLUCONAZOLE. [Concomitant]
     Active Substance: FLUCONAZOLE
     Indication: ORAL CANDIDIASIS
     Dosage: 200 MILLIGRAM, STAT
     Route: 048
     Dates: start: 20200512, end: 20200512
  8. PARACETAMOL [Concomitant]
     Active Substance: ACETAMINOPHEN
     Indication: HEADACHE
     Dosage: 1 GRAM, PRN
     Route: 065
     Dates: start: 20190930
  9. DEXAMETHASONE. [Concomitant]
     Active Substance: DEXAMETHASONE
     Indication: PROPHYLAXIS
     Dosage: 8 MILLIGRAM, PRN
     Route: 065
     Dates: start: 20191015
  10. PANTOPRAZOLE [Concomitant]
     Active Substance: PANTOPRAZOLE
     Indication: PROPHYLAXIS
     Dosage: 40 MILLIGRAM, DAILY
     Route: 048
     Dates: start: 20200824
  11. ENOXAPARIN [Concomitant]
     Active Substance: ENOXAPARIN
     Dosage: 40 MILLIGRAM, DAILY
     Route: 065
     Dates: start: 20200826, end: 20200826
  12. PARACETAMOL [Concomitant]
     Active Substance: ACETAMINOPHEN
     Indication: PROPHYLAXIS
     Dosage: 1 GRAM, PRN
     Route: 065
     Dates: start: 20191015
  13. LORATADINE. [Concomitant]
     Active Substance: LORATADINE
     Indication: RASH
     Dosage: 10 MILLIGRAM, PRN
     Route: 065
     Dates: start: 20191015
  14. AMPHOTERICIN [Concomitant]
     Active Substance: AMPHOTERICIN B
     Indication: CANDIDA INFECTION
     Dosage: HAF TABLET, PRN
     Route: 048
     Dates: start: 20200416, end: 20200611
  15. OXYCODONE [Concomitant]
     Active Substance: OXYCODONE
     Indication: ABDOMINAL PAIN
     Dosage: 5 MILLIGRAM, PRN
     Route: 048
     Dates: start: 20200822
  16. MAGNESIUM [Concomitant]
     Active Substance: MAGNESIUM
     Indication: HYPOMAGNESAEMIA
     Dosage: 10 MMOL, PRN
     Route: 065
     Dates: start: 20200823
  17. NIVOLUMAB [Suspect]
     Active Substance: NIVOLUMAB
     Indication: LYMPHOMA
     Dosage: 480 MILLIGRAM, QMO
     Route: 042
     Dates: start: 20190917
  18. ALLOPURINOL. [Concomitant]
     Active Substance: ALLOPURINOL
     Indication: PROPHYLAXIS
     Dosage: 300 MILLIGRAM, DAILY
     Route: 065
     Dates: start: 20190917, end: 20200317
  19. PHENERGAN [Concomitant]
     Active Substance: PROMETHAZINE HYDROCHLORIDE
     Indication: INFUSION RELATED REACTION
     Dosage: 12.5 MILLIGRAM, PRN
     Route: 065
     Dates: start: 20191001, end: 20191001
  20. LORATADINE. [Concomitant]
     Active Substance: LORATADINE
     Indication: PROPHYLAXIS
     Dosage: 10 MILLIGRAM STAT
     Route: 065
     Dates: start: 20191001, end: 20191001
  21. AMPHOTERICIN [Concomitant]
     Active Substance: AMPHOTERICIN B
     Dosage: HAF TABLET, PRN
     Route: 048
     Dates: start: 20200704
  22. FLUCONAZOLE. [Concomitant]
     Active Substance: FLUCONAZOLE
     Dosage: 100 MILLIGRAM, DAILY
     Route: 048
     Dates: start: 20200513, end: 20200526
  23. FLUCONAZOLE. [Concomitant]
     Active Substance: FLUCONAZOLE
     Dosage: 100 MILLIGRAM, DAILY
     Route: 048
     Dates: start: 20200707

REACTIONS (2)
  - Sepsis [Recovering/Resolving]
  - Pyelonephritis [Recovering/Resolving]

NARRATIVE: CASE EVENT DATE: 20200822
